FAERS Safety Report 23755289 (Version 4)
Quarter: 2024Q2

REPORT INFORMATION
  Report Type: Spontaneous
  Country: JP (occurrence: None)
  Receive Date: 20240418
  Receipt Date: 20240530
  Transmission Date: 20240716
  Serious: Yes (Life-Threatening, Other)
  Sender: FDA-Public Use
  Company Number: 2024A088093

PATIENT
  Age: 95 Year
  Sex: Female

DRUGS (2)
  1. ONDEXXYA [Suspect]
     Active Substance: ANDEXANET ALFA
     Indication: Subdural haematoma
     Dosage: 880.0MG UNKNOWN
     Route: 042
     Dates: start: 20240220, end: 20240220
  2. ELIQUIS [Concomitant]
     Active Substance: APIXABAN
     Dosage: DOSE UNKNOWN
     Route: 048

REACTIONS (5)
  - Multiple organ dysfunction syndrome [Not Recovered/Not Resolved]
  - Septic shock [Recovering/Resolving]
  - Cerebral infarction [Not Recovered/Not Resolved]
  - Coagulopathy [Not Recovered/Not Resolved]
  - Renal impairment [Not Recovered/Not Resolved]

NARRATIVE: CASE EVENT DATE: 20240220
